FAERS Safety Report 18420643 (Version 1)
Quarter: 2020Q4

REPORT INFORMATION
  Report Type: Spontaneous
  Country: US (occurrence: US)
  Receive Date: 20201023
  Receipt Date: 20201023
  Transmission Date: 20210114
  Serious: Yes (Hospitalization)
  Sender: FDA-Public Use
  Company Number: US-ASTRAZENECA-2020SF36360

PATIENT
  Age: 52 Year
  Sex: Female

DRUGS (1)
  1. DURVALUMAB. [Suspect]
     Active Substance: DURVALUMAB
     Indication: LUNG ADENOCARCINOMA
     Route: 042

REACTIONS (3)
  - Acute kidney injury [Recovering/Resolving]
  - Endocarditis noninfective [Recovering/Resolving]
  - Diffuse vasculitis [Recovering/Resolving]
